FAERS Safety Report 18541427 (Version 6)
Quarter: 2022Q1

REPORT INFORMATION
  Report Type: Report from Study
  Country: US (occurrence: US)
  Receive Date: 20201124
  Receipt Date: 20220121
  Transmission Date: 20220423
  Serious: Yes (Hospitalization)
  Sender: FDA-Public Use
  Company Number: US-TEVA-2020-US-1852344

PATIENT
  Age: 57 Year
  Sex: Female

DRUGS (4)
  1. TREPROSTINIL [Suspect]
     Active Substance: TREPROSTINIL
     Indication: Pulmonary arterial hypertension
     Dosage: 55NG/KG/MIN
     Route: 042
     Dates: start: 20190614
  2. TREPROSTINIL [Suspect]
     Active Substance: TREPROSTINIL
     Dosage: 55NG/KG/MIN
     Route: 042
     Dates: start: 20210208
  3. TREPROSTINIL [Suspect]
     Active Substance: TREPROSTINIL
     Dosage: 55 NG/KG/MIN, 34 ML/24HR PUMP RATE. PATIENT IS USING 3 ML TREPROSTINIL 5MG/ML EVERY 48 HOURS
     Route: 042
     Dates: start: 202101
  4. TREPROSTINIL [Suspect]
     Active Substance: TREPROSTINIL
     Dosage: 55NG/KG/MIN
     Route: 042
     Dates: start: 20190204

REACTIONS (20)
  - Tachycardia [Unknown]
  - Pyrexia [Unknown]
  - Heart rate increased [Unknown]
  - Loss of consciousness [Unknown]
  - Diarrhoea [Unknown]
  - Nasal congestion [Unknown]
  - Pain in jaw [Unknown]
  - Eye pain [Unknown]
  - Headache [Unknown]
  - Oropharyngeal pain [Unknown]
  - Pain in extremity [Unknown]
  - Sinusitis [Unknown]
  - Nausea [Unknown]
  - Arthralgia [Unknown]
  - Fluid retention [Unknown]
  - Dyspnoea [Unknown]
  - Respiration abnormal [Unknown]
  - Adverse event [Unknown]
  - Drug dose omission by device [Unknown]
  - Drug monitoring procedure incorrectly performed [Unknown]

NARRATIVE: CASE EVENT DATE: 20210218
